FAERS Safety Report 14944529 (Version 1)
Quarter: 2018Q2

REPORT INFORMATION
  Report Type: Spontaneous
  Country: US (occurrence: US)
  Receive Date: 20180529
  Receipt Date: 20180529
  Transmission Date: 20180711
  Serious: No
  Sender: FDA-Public Use
  Company Number: US-B.I. PHARMACEUTICALS,INC./RIDGEFIELD-2018-BI-027924

PATIENT
  Sex: Female

DRUGS (4)
  1. PROVENTIL [Concomitant]
     Active Substance: ALBUTEROL
     Indication: PRODUCT USED FOR UNKNOWN INDICATION
     Route: 065
  2. SINGULAIR [Concomitant]
     Active Substance: MONTELUKAST SODIUM
     Indication: PRODUCT USED FOR UNKNOWN INDICATION
     Route: 065
  3. LISINOPRIL. [Concomitant]
     Active Substance: LISINOPRIL
     Indication: PRODUCT USED FOR UNKNOWN INDICATION
     Route: 065
  4. SPIRIVA [Suspect]
     Active Substance: TIOTROPIUM BROMIDE MONOHYDRATE
     Indication: CHRONIC OBSTRUCTIVE PULMONARY DISEASE
     Dosage: INHALE CONTENTS OF ONE CAPSULE ONCE A DAY;  FORM STRENGTH: 18 MCG; FORM: CAP ACTION: DRUG WITHDRAWN
     Route: 055
     Dates: start: 2015, end: 201804

REACTIONS (3)
  - Cough [Recovered/Resolved]
  - Dry mouth [Recovered/Resolved]
  - Inhalation therapy [Recovered/Resolved]

NARRATIVE: CASE EVENT DATE: 2015
